FAERS Safety Report 5925115-8 (Version None)
Quarter: 2008Q4

REPORT INFORMATION
  Report Type: 
  Country: None (occurrence: None)
  Receive Date: 20081021
  Receipt Date: 20081014
  Transmission Date: 20090506
  Serious: Yes (Disabling, Other)
  Sender: FDA-Public Use
  Company Number: CH-BAYER-200827897GPV

PATIENT
  Age: 60 Year
  Sex: Female
  Weight: 58 kg

DRUGS (8)
  1. MABCAMPATH [Suspect]
     Indication: B-CELL LYMPHOMA STAGE IV
     Route: 042
  2. MABCAMPATH [Suspect]
     Route: 042
  3. MABCAMPATH [Suspect]
     Route: 042
  4. MABCAMPATH [Suspect]
     Route: 042
  5. MABCAMPATH [Suspect]
     Route: 042
     Dates: start: 20080519, end: 20080623
  6. BACTRIM DS [Concomitant]
  7. MARCUMAR [Concomitant]
     Dates: start: 20080915
  8. VALTREX [Concomitant]

REACTIONS (3)
  - CYTOMEGALOVIRUS INFECTION [None]
  - NASAL NECROSIS [None]
  - NASAL SEPTUM PERFORATION [None]
